FAERS Safety Report 16397520 (Version 2)
Quarter: 2019Q2

REPORT INFORMATION
  Report Type: Spontaneous
  Country: US (occurrence: US)
  Receive Date: 20190606
  Receipt Date: 20190627
  Transmission Date: 20190711
  Serious: Yes (Hospitalization)
  Sender: FDA-Public Use
  Company Number: US-DRREDDYS-USA/USA/19/0110803

PATIENT
  Age: 68 Year
  Sex: Male

DRUGS (2)
  1. DAPTOMYCIN FOR INJECTION [Suspect]
     Active Substance: DAPTOMYCIN
     Indication: STAPHYLOCOCCAL INFECTION
     Route: 065
  2. CEFTAROLINE FOSAMIL [Suspect]
     Active Substance: CEFTAROLINE FOSAMIL
     Indication: STAPHYLOCOCCAL INFECTION

REACTIONS (2)
  - Eosinophilic pneumonia [Unknown]
  - Pneumonitis [Unknown]
